FAERS Safety Report 4912195-1 (Version None)
Quarter: 2006Q1

REPORT INFORMATION
  Report Type: 
  Country: None (occurrence: None)
  Receive Date: 20060215
  Receipt Date: 20050920
  Transmission Date: 20060701
  Serious: No
  Sender: FDA-Public Use
  Company Number: US-GLAXOSMITHKLINE-A0575049A

PATIENT
  Age: 59 Year
  Sex: Female

DRUGS (3)
  1. VALTREX [Suspect]
     Dosage: 500MG PER DAY
     Route: 048
     Dates: end: 20050919
  2. NEXIUM [Concomitant]
  3. FOSAMAX [Concomitant]

REACTIONS (3)
  - DYSPEPSIA [None]
  - ERUCTATION [None]
  - FLATULENCE [None]
